FAERS Safety Report 11652332 (Version 5)
Quarter: 2016Q1

REPORT INFORMATION
  Report Type: Report from Study
  Country: US (occurrence: US)
  Receive Date: 20151022
  Receipt Date: 20160120
  Transmission Date: 20160525
  Serious: Yes (Hospitalization, Other)
  Sender: FDA-Public Use
  Company Number: US-MALLINCKRODT-T201504566

PATIENT
  Age: 55 Year
  Sex: Female
  Weight: 98 kg

DRUGS (8)
  1. PROTONIX [Concomitant]
     Active Substance: PANTOPRAZOLE SODIUM
  2. OXYGEN. [Concomitant]
     Active Substance: OXYGEN
     Indication: CHRONIC OBSTRUCTIVE PULMONARY DISEASE
  3. PREDNISONE. [Concomitant]
     Active Substance: PREDNISONE
  4. REPOSITORY CORTICOTROPIN INJECTION [Suspect]
     Active Substance: CORTICOTROPIN
     Dosage: 1 INJECTION WEEKLY FOR 3 WKS
     Route: 058
     Dates: start: 201511, end: 20151216
  5. POTASSIUM [Concomitant]
     Active Substance: POTASSIUM
  6. REPOSITORY CORTICOTROPIN INJECTION [Suspect]
     Active Substance: CORTICOTROPIN
     Indication: PULMONARY SARCOIDOSIS
     Dosage: 80 UNITS TWICE WKLY (TUES/FRI)
     Route: 058
     Dates: start: 20150915, end: 201511
  7. ZOCOR [Concomitant]
     Active Substance: SIMVASTATIN
  8. OXYGEN. [Concomitant]
     Active Substance: OXYGEN
     Indication: PULMONARY SARCOIDOSIS
     Dosage: 2 LITER (L) CONTINUOUS FLOW RATE
     Route: 045

REACTIONS (17)
  - Chest pain [Not Recovered/Not Resolved]
  - Pulmonary sarcoidosis [Recovering/Resolving]
  - Pulmonary fibrosis [Recovering/Resolving]
  - Activities of daily living impaired [Not Recovered/Not Resolved]
  - Injection site haemorrhage [Recovered/Resolved]
  - Nausea [Recovered/Resolved]
  - Headache [Not Recovered/Not Resolved]
  - Pneumonia [Not Recovered/Not Resolved]
  - Drug dose omission [Recovered/Resolved]
  - Blood pressure increased [Not Recovered/Not Resolved]
  - Muscle strain [Not Recovered/Not Resolved]
  - Diabetes mellitus [Not Recovered/Not Resolved]
  - Weight decreased [Not Recovered/Not Resolved]
  - Dizziness postural [Not Recovered/Not Resolved]
  - Drug ineffective [Not Recovered/Not Resolved]
  - Cough [Not Recovered/Not Resolved]
  - Blood glucose fluctuation [Not Recovered/Not Resolved]

NARRATIVE: CASE EVENT DATE: 2015
